FAERS Safety Report 7427622-8 (Version None)
Quarter: 2011Q2

REPORT INFORMATION
  Report Type: 
  Country: None (occurrence: None)
  Receive Date: 20110421
  Receipt Date: 20110411
  Transmission Date: 20111010
  Serious: Yes (Hospitalization, Other)
  Sender: FDA-Public Use
  Company Number: US-MYLANLABS-2011S1004499

PATIENT
  Age: 55 Year
  Sex: Male
  Weight: 112.49 kg

DRUGS (7)
  1. NIASPAN [Concomitant]
  2. METFORMIN HCL [Suspect]
  3. AMLODIPINE [Concomitant]
  4. LOSARTAN [Concomitant]
     Dosage: 100MG/25MG
  5. VICTOZA [Suspect]
     Indication: TYPE 2 DIABETES MELLITUS
  6. HYDROCHLOROTHIAZIDE [Suspect]
     Indication: HYPERTENSION
  7. SIMVASTATIN [Concomitant]

REACTIONS (1)
  - PANCREATITIS ACUTE [None]
